FAERS Safety Report 4624235-8 (Version None)
Quarter: 2005Q1

REPORT INFORMATION
  Report Type: 
  Country: None (occurrence: None)
  Receive Date: 20050330
  Receipt Date: 20050330
  Transmission Date: 20050727
  Serious: Yes (Death, Hospitalization, Disabling, Other)
  Sender: FDA-Public Use
  Company Number: None

PATIENT
  Age: 63 Year
  Sex: Female

DRUGS (2)
  1. TAXOL [Suspect]
     Indication: OVARIAN CANCER
     Dosage: DEC 98, 11 TIMES ^ONCE A MONTH VIA GROSHING TO VENA CAVA.
  2. CARBOPLATIN W/ TAXOL [Concomitant]

REACTIONS (9)
  - ANASTOMOTIC COMPLICATION [None]
  - COLOSTOMY [None]
  - DEHYDRATION [None]
  - GASTROINTESTINAL DISORDER [None]
  - HERNIA [None]
  - INFECTION [None]
  - NEOPLASM MALIGNANT [None]
  - STARVATION [None]
  - WEIGHT DECREASED [None]
